FAERS Safety Report 8529520-5 (Version None)
Quarter: 2012Q3

REPORT INFORMATION
  Report Type: 
  Country: None (occurrence: None)
  Receive Date: 20120723
  Receipt Date: 20120713
  Transmission Date: 20120928
  Serious: Yes (Other)
  Sender: FDA-Public Use
  Company Number: CA-JNJFOC-20120707536

PATIENT
  Sex: Male
  Weight: 63.6 kg

DRUGS (4)
  1. PREDNISONE [Concomitant]
     Route: 048
  2. OXYCONTIN [Concomitant]
     Dosage: 8 TABS
     Route: 048
  3. IMOVANE [Concomitant]
     Route: 048
  4. REMICADE [Suspect]
     Indication: CROHN'S DISEASE
     Route: 042
     Dates: start: 20100326

REACTIONS (1)
  - INTESTINAL ANASTOMOSIS COMPLICATION [None]
